FAERS Safety Report 20415564 (Version 2)
Quarter: 2022Q1

REPORT INFORMATION
  Report Type: Report from Study
  Country: EG (occurrence: EG)
  Receive Date: 20220202
  Receipt Date: 20220206
  Transmission Date: 20220423
  Serious: Yes (Other)
  Sender: FDA-Public Use
  Company Number: EG-NOVARTISPH-NVSC2022EG020421

PATIENT
  Age: 63 Year
  Sex: Female

DRUGS (5)
  1. AFINITOR [Suspect]
     Active Substance: EVEROLIMUS
     Indication: Breast cancer metastatic
     Dosage: 10 MG, QD (ONE TABLET PER DAY, STRENGTH: 10 MG)
     Route: 065
     Dates: start: 201907, end: 202107
  2. AFINITOR [Suspect]
     Active Substance: EVEROLIMUS
     Indication: Bone cancer metastatic
     Dosage: 5 MG, QD (ONE TABLET PER DAY, STRENGTH: 5 MG)
     Route: 065
     Dates: start: 202109
  3. AFINITOR [Suspect]
     Active Substance: EVEROLIMUS
     Indication: Lung cancer metastatic
  4. AROMASIN [Concomitant]
     Active Substance: EXEMESTANE
     Indication: Breast cancer metastatic
     Dosage: 1 DOSAGE FORM, QD (ONE TABLET PER DAY)
     Route: 065
     Dates: start: 2019
  5. ATENOLOL\CHLORTHALIDONE [Concomitant]
     Active Substance: ATENOLOL\CHLORTHALIDONE
     Indication: Hypertension
     Dosage: 1 DOSAGE FORM, QD (ONE TABLET PER DAY IN THE MORNING), FROM 15 YEARS ( EXACT DATE IS UNKNOWN BY THE
     Route: 065

REACTIONS (16)
  - Renal disorder [Recovering/Resolving]
  - Diabetes mellitus [Recovering/Resolving]
  - Hyperglycaemia [Recovering/Resolving]
  - Renal impairment [Recovering/Resolving]
  - Cardiac disorder [Not Recovered/Not Resolved]
  - Back pain [Not Recovered/Not Resolved]
  - Lung disorder [Not Recovered/Not Resolved]
  - Dyspnoea [Not Recovered/Not Resolved]
  - Fatigue [Not Recovered/Not Resolved]
  - Cardiomyopathy [Not Recovered/Not Resolved]
  - Blood glucose increased [Recovering/Resolving]
  - Bone pain [Not Recovered/Not Resolved]
  - Pain in extremity [Unknown]
  - Quality of life decreased [Not Recovered/Not Resolved]
  - Insomnia [Not Recovered/Not Resolved]
  - Nail disorder [Not Recovered/Not Resolved]

NARRATIVE: CASE EVENT DATE: 20210101
